FAERS Safety Report 4824121-4 (Version None)
Quarter: 2005Q4

REPORT INFORMATION
  Report Type: 
  Country: None (occurrence: None)
  Receive Date: 20051108
  Receipt Date: 20051024
  Transmission Date: 20060501
  Serious: Yes (Hospitalization, Other)
  Sender: FDA-Public Use
  Company Number: US_0510123327

PATIENT
  Age: 46 Year
  Sex: Female
  Weight: 64 kg

DRUGS (23)
  1. PROZAC [Suspect]
     Indication: DEPRESSION
     Dosage: 40 MG AT BEDTIME
     Dates: start: 20050503
  2. PEG-INTRON [Concomitant]
  3. REBETOL [Concomitant]
  4. OMEPRAZOLE [Concomitant]
  5. ENALAPRIL [Concomitant]
  6. PHENERGAN [Concomitant]
  7. RESTORIL [Concomitant]
  8. DICYCLOMINE HYDROCHLORIDE [Concomitant]
  9. ERGOTAMINE [Concomitant]
  10. AMLODIPINE [Concomitant]
  11. METHADONE HYDROCHLORIDE [Concomitant]
  12. TRAMADOL HYDROCHLORIDE [Concomitant]
  13. PROPOXYPHENE HCL [Concomitant]
  14. MORPHINE SULFATE [Concomitant]
  15. RANITIDINE [Concomitant]
  16. TRIAMCINOLONE [Concomitant]
  17. MEGESTROL ACETATE [Concomitant]
  18. CEPHALEXIN [Concomitant]
  19. PROMETHAZINE [Concomitant]
  20. TRAZODONE HCL [Concomitant]
  21. DOXEPIN HCL [Concomitant]
  22. DIAZEPAM [Concomitant]
  23. NORTRIPTYLINE HCL [Concomitant]

REACTIONS (11)
  - ARTHRALGIA [None]
  - CHEST PAIN [None]
  - DEHYDRATION [None]
  - DYSPNOEA [None]
  - DYSTONIA [None]
  - HEART RATE INCREASED [None]
  - HYPERTENSION [None]
  - HYPOKALAEMIA [None]
  - NAUSEA [None]
  - RESPIRATORY RATE INCREASED [None]
  - VOMITING [None]
